FAERS Safety Report 24853343 (Version 3)
Quarter: 2025Q3

REPORT INFORMATION
  Report Type: Spontaneous
  Country: EU (occurrence: EU)
  Receive Date: 20250117
  Receipt Date: 20250717
  Transmission Date: 20251020
  Serious: Yes (Hospitalization)
  Sender: NOVEN
  Company Number: EU-NOVEN PHARMACEUTICALS, INC.-2025-NOV-FR000073

PATIENT
  Age: 44 Year
  Sex: Female

DRUGS (1)
  1. METHYLPHENIDATE [Suspect]
     Active Substance: METHYLPHENIDATE
     Indication: Attention deficit hyperactivity disorder
     Dosage: 54 MG, 2/WEEK
     Route: 062

REACTIONS (1)
  - Reversible cerebral vasoconstriction syndrome [Recovered/Resolved]
